FAERS Safety Report 6060219-3 (Version None)
Quarter: 2009Q1

REPORT INFORMATION
  Report Type: 
  Country: None (occurrence: None)
  Receive Date: 20090129
  Receipt Date: 20090119
  Transmission Date: 20090719
  Serious: Yes (Other)
  Sender: FDA-Public Use
  Company Number: 1000003664

PATIENT
  Age: 82 Year
  Sex: Female

DRUGS (6)
  1. ESCITALOPRAM [Suspect]
     Indication: DEPRESSION
     Dosage: 5 MG, (5 MG, 1 IN 1 D), ORAL
     Route: 048
     Dates: start: 20090101
  2. MODOPAR [Concomitant]
  3. OGAST [Concomitant]
  4. LACTULOSE [Concomitant]
  5. PRACTAZIN [Concomitant]
  6. ANTI-PARKINSON DRUGS [Concomitant]

REACTIONS (3)
  - CONDITION AGGRAVATED [None]
  - FALL [None]
  - PARKINSONISM [None]
